FAERS Safety Report 17325401 (Version 1)
Quarter: 2020Q1

REPORT INFORMATION
  Report Type: Report from Study
  Country: GT (occurrence: GT)
  Receive Date: 20200127
  Receipt Date: 20200127
  Transmission Date: 20200409
  Serious: Yes (Life-Threatening, Other)
  Sender: FDA-Public Use
  Company Number: NVSC2020GT019522

PATIENT
  Age: 57 Year
  Sex: Female

DRUGS (1)
  1. EXFORGE [Suspect]
     Active Substance: AMLODIPINE BESYLATE\VALSARTAN
     Indication: PRODUCT USED FOR UNKNOWN INDICATION
     Dosage: 1 DF (AMLODIPINE 10 MG, VALSARTAN 320 MG) (STARTED 7 OR 8 MONTHS AGO APPROXIMATELY)
     Route: 065

REACTIONS (2)
  - Diabetes mellitus [Unknown]
  - Renal failure [Unknown]
